FAERS Safety Report 12265638 (Version 5)
Quarter: 2016Q3

REPORT INFORMATION
  Report Type: Report from Study
  Country: US (occurrence: US)
  Receive Date: 20160413
  Receipt Date: 20160728
  Transmission Date: 20161109
  Serious: Yes (Hospitalization, Other)
  Sender: FDA-Public Use
  Company Number: US-GILEAD-2016-0208132

PATIENT
  Age: 74 Year
  Sex: Female

DRUGS (5)
  1. AMBRISENTAN [Suspect]
     Active Substance: AMBRISENTAN
     Indication: PRODUCT USED FOR UNKNOWN INDICATION
     Dosage: 5 MG, QD
     Route: 065
     Dates: start: 20160330
  2. AMBRISENTAN [Suspect]
     Active Substance: AMBRISENTAN
     Dosage: 10 MG, QD
     Route: 065
  3. TYVASO [Concomitant]
     Active Substance: TREPROSTINIL
  4. ADCIRCA [Concomitant]
     Active Substance: TADALAFIL
  5. OXYGEN. [Concomitant]
     Active Substance: OXYGEN

REACTIONS (8)
  - Dyspnoea [Unknown]
  - Fatigue [Unknown]
  - Fluid retention [Unknown]
  - Malaise [Unknown]
  - Exercise tolerance decreased [Unknown]
  - Oxygen saturation decreased [Unknown]
  - Cough [Unknown]
  - Headache [Not Recovered/Not Resolved]
